FAERS Safety Report 8201034-1 (Version None)
Quarter: 2012Q1

REPORT INFORMATION
  Report Type: 
  Country: None (occurrence: None)
  Receive Date: 20120312
  Receipt Date: 20120305
  Transmission Date: 20120608
  Serious: Yes (Hospitalization)
  Sender: FDA-Public Use
  Company Number: US-JNJFOC-20120302160

PATIENT
  Age: 20 Year
  Sex: Male

DRUGS (2)
  1. PROPULSID [Suspect]
     Indication: PRODUCT USED FOR UNKNOWN INDICATION
     Route: 065
     Dates: start: 20020101
  2. PROPULSID [Suspect]
     Route: 065

REACTIONS (1)
  - INTESTINAL OBSTRUCTION [None]
